FAERS Safety Report 5158522-4 (Version None)
Quarter: 2006Q4

REPORT INFORMATION
  Report Type: 
  Country: None (occurrence: None)
  Receive Date: 20061117
  Receipt Date: 20061106
  Transmission Date: 20070319
  Serious: Yes (Death)
  Sender: FDA-Public Use
  Company Number: E2020-00668-SPO-DE

PATIENT
  Age: 69 Year
  Sex: Female

DRUGS (7)
  1. ARICEPT [Suspect]
     Indication: DEMENTIA
     Dosage: 5 MG, 1 IN 1 D, ORAL
     Route: 048
     Dates: start: 20051115, end: 20051125
  2. GLIANIMON       (BENPERIDOL) [Suspect]
     Dosage: SEE IMAGE
     Route: 048
     Dates: start: 20050916, end: 20051116
  3. GLIANIMON       (BENPERIDOL) [Suspect]
     Dosage: SEE IMAGE
     Route: 048
     Dates: start: 20051117, end: 20051125
  4. METOPROLOL SUCCINATE [Suspect]
     Dosage: 47.5 MG, ORAL
     Route: 048
     Dates: start: 20051026, end: 20051125
  5. LORAZEPAM [Concomitant]
  6. LEVOTHYROXINE SODIUM [Concomitant]
  7. ENOXAPARIN SODIUM [Concomitant]

REACTIONS (8)
  - AGITATION [None]
  - CONFUSIONAL STATE [None]
  - DELIRIUM [None]
  - DRUG INTERACTION [None]
  - MOBILITY DECREASED [None]
  - MYOCARDIAL INFARCTION [None]
  - PULMONARY EMBOLISM [None]
  - SUDDEN DEATH [None]
